FAERS Safety Report 16364184 (Version 1)
Quarter: 2019Q2

REPORT INFORMATION
  Report Type: Spontaneous
  Country: CZ (occurrence: CZ)
  Receive Date: 20190528
  Receipt Date: 20190528
  Transmission Date: 20190711
  Serious: Yes (Other)
  Sender: FDA-Public Use
  Company Number: PHHY2019CZ119874

PATIENT
  Sex: Male

DRUGS (2)
  1. EXJADE [Suspect]
     Active Substance: DEFERASIROX
     Indication: PRODUCT USED FOR UNKNOWN INDICATION
     Dosage: 500 MG, BID
     Route: 065
     Dates: start: 2015
  2. EXJADE [Suspect]
     Active Substance: DEFERASIROX
     Dosage: 360 MG, BID
     Route: 065
     Dates: start: 2018

REACTIONS (1)
  - Chronic kidney disease [Unknown]
